FAERS Safety Report 14845741 (Version 2)
Quarter: 2018Q2

REPORT INFORMATION
  Report Type: Spontaneous
  Country: US (occurrence: US)
  Receive Date: 20180504
  Receipt Date: 20180514
  Transmission Date: 20180711
  Serious: Yes (Other)
  Sender: FDA-Public Use
  Company Number: US-JNJFOC-20180429826

PATIENT
  Age: 69 Year
  Sex: Male

DRUGS (7)
  1. TAMSULOSIN [Concomitant]
     Active Substance: TAMSULOSIN
     Route: 065
  2. PREDNISONE. [Concomitant]
     Active Substance: PREDNISONE
     Route: 065
  3. TOUJEO [Concomitant]
     Active Substance: INSULIN GLARGINE
     Indication: DIABETES MELLITUS
     Route: 065
  4. ZYTIGA [Suspect]
     Active Substance: ABIRATERONE ACETATE
     Indication: PLASMA CELL MYELOMA
     Route: 048
     Dates: start: 20180423
  5. LUPRON [Concomitant]
     Active Substance: LEUPROLIDE ACETATE
     Indication: NEOPLASM MALIGNANT
     Route: 065
  6. ZYTIGA [Suspect]
     Active Substance: ABIRATERONE ACETATE
     Indication: PLASMA CELL MYELOMA
     Route: 048
     Dates: start: 20170717, end: 20180326
  7. INSULIN [Concomitant]
     Active Substance: INSULIN NOS
     Indication: DIABETES MELLITUS
     Route: 065

REACTIONS (5)
  - Hepatic enzyme increased [Unknown]
  - Off label use [Unknown]
  - Pancreatitis [Recovering/Resolving]
  - Product use in unapproved indication [Unknown]
  - Malaise [Unknown]

NARRATIVE: CASE EVENT DATE: 20170717
